FAERS Safety Report 23608201 (Version 2)
Quarter: 2025Q3

REPORT INFORMATION
  Report Type: Spontaneous
  Country: JP (occurrence: JP)
  Receive Date: 20240307
  Receipt Date: 20250820
  Transmission Date: 20251020
  Serious: Yes (Hospitalization)
  Sender: EISAI
  Company Number: JP-Eisai-202213174_LEN-RCC_P_1

PATIENT
  Age: 65 Year
  Sex: Male

DRUGS (5)
  1. LENVATINIB [Suspect]
     Active Substance: LENVATINIB
     Indication: Clear cell renal cell carcinoma
     Dates: start: 20220722, end: 202210
  2. LENVATINIB [Suspect]
     Active Substance: LENVATINIB
  3. LENVATINIB [Suspect]
     Active Substance: LENVATINIB
     Dates: start: 202308, end: 202308
  4. PEMBROLIZUMAB [Suspect]
     Active Substance: PEMBROLIZUMAB
     Indication: Clear cell renal cell carcinoma
     Dates: start: 20220722, end: 202210
  5. PEMBROLIZUMAB [Suspect]
     Active Substance: PEMBROLIZUMAB

REACTIONS (3)
  - Interstitial lung disease [Recovered/Resolved]
  - Decreased appetite [Recovered/Resolved]
  - Malaise [Unknown]

NARRATIVE: CASE EVENT DATE: 20220701
